FAERS Safety Report 6981431-2 (Version None)
Quarter: 2010Q3

REPORT INFORMATION
  Report Type: 
  Country: None (occurrence: None)
  Receive Date: 20100914
  Receipt Date: 20100419
  Transmission Date: 20110219
  Serious: No
  Sender: FDA-Public Use
  Company Number: US-BRISTOL-MYERS SQUIBB COMPANY-15076094

PATIENT
  Sex: Female

DRUGS (4)
  1. MEGACE [Suspect]
     Indication: INCREASED APPETITE
     Dosage: SINCE 3 WEEKS
     Route: 048
     Dates: start: 20100301
  2. CIPROFLOXACIN [Concomitant]
  3. COQ10 [Concomitant]
  4. NAMENDA [Concomitant]

REACTIONS (1)
  - FAECES DISCOLOURED [None]
